FAERS Safety Report 17675396 (Version 1)
Quarter: 2020Q2

REPORT INFORMATION
  Report Type: Report from Study
  Country: None (occurrence: US)
  Receive Date: 20200416
  Receipt Date: 20200416
  Transmission Date: 20200714
  Serious: Yes (Hospitalization, Other)
  Sender: FDA-Public Use
  Company Number: US-ABBVIE-20K-163-3308971-00

PATIENT
  Sex: Female

DRUGS (2)
  1. VENCLEXTA [Suspect]
     Active Substance: VENETOCLAX
     Route: 048
  2. VENCLEXTA [Suspect]
     Active Substance: VENETOCLAX
     Indication: ACUTE MYELOID LEUKAEMIA
     Route: 048
     Dates: start: 20191205

REACTIONS (8)
  - Blood potassium decreased [Unknown]
  - Cytomegalovirus infection [Unknown]
  - Post procedural infection [Unknown]
  - Constipation [Unknown]
  - Gastrointestinal disorder [Unknown]
  - Appendicitis [Unknown]
  - Abdominal pain [Unknown]
  - Pilonidal cyst [Unknown]
